FAERS Safety Report 14985987 (Version 1)
Quarter: 2018Q2

REPORT INFORMATION
  Report Type: Spontaneous
  Country: US (occurrence: US)
  Receive Date: 20180516
  Receipt Date: 20180516
  Transmission Date: 20180711
  Serious: Yes (Hospitalization)
  Sender: FDA-Public Use
  Company Number: None

PATIENT
  Age: 74 Year
  Sex: Male

DRUGS (2)
  1. WARFARIN [Suspect]
     Active Substance: WARFARIN
     Indication: ATRIAL FIBRILLATION
     Dates: start: 20100507, end: 20171224
  2. HEPARIN [Suspect]
     Active Substance: HEPARIN SODIUM
     Dates: start: 20171218, end: 20171224

REACTIONS (3)
  - Fall [None]
  - Haemorrhage intracranial [None]
  - Oedema [None]

NARRATIVE: CASE EVENT DATE: 20171224
